FAERS Safety Report 9397574 (Version 1)
Quarter: 2013Q3

REPORT INFORMATION
  Report Type: Spontaneous
  Country: DE (occurrence: DE)
  Receive Date: 20130712
  Receipt Date: 20130712
  Transmission Date: 20140515
  Serious: Yes (Other)
  Sender: FDA-Public Use
  Company Number: DE-BAUSCH-BL-2013-004015

PATIENT
  Sex: Male

DRUGS (3)
  1. TIM-OPHTAL 0.25% SINE [Suspect]
     Indication: INTRAOCULAR PRESSURE INCREASED
     Route: 047
  2. TIM-OPHTAL 0.5% [Suspect]
     Indication: INTRAOCULAR PRESSURE INCREASED
     Route: 047
  3. ATACAND [Concomitant]
     Indication: PRODUCT USED FOR UNKNOWN INDICATION

REACTIONS (4)
  - Cerebral microangiopathy [Not Recovered/Not Resolved]
  - Contraindication to medical treatment [Not Recovered/Not Resolved]
  - Dizziness [Not Recovered/Not Resolved]
  - Somnolence [Not Recovered/Not Resolved]
